FAERS Safety Report 6982753-1 (Version None)
Quarter: 2010Q3

REPORT INFORMATION
  Report Type: 
  Country: None (occurrence: None)
  Receive Date: 20100909
  Receipt Date: 20100826
  Transmission Date: 20110219
  Serious: Yes (Other)
  Sender: FDA-Public Use
  Company Number: 1-22722932

PATIENT
  Age: 73 Year
  Sex: Male
  Weight: 73.4827 kg

DRUGS (16)
  1. FENTANYL-75 [Suspect]
     Indication: BACK PAIN
     Dosage: 75 MCG/HR, TRANSDERMAL
     Route: 062
     Dates: start: 20100519, end: 20100501
  2. FENTANYL-75 [Suspect]
     Indication: MUSCULOSKELETAL CHEST PAIN
     Dosage: 75 MCG/HR, TRANSDERMAL
     Route: 062
     Dates: start: 20100519, end: 20100501
  3. FENTANYL [Suspect]
     Indication: BACK PAIN
     Dosage: 50 MCG/HR, TRANSDERMAL
     Route: 062
     Dates: start: 20100501
  4. FENTANYL [Suspect]
     Indication: MUSCULOSKELETAL CHEST PAIN
     Dosage: 50 MCG/HR, TRANSDERMAL
     Route: 062
     Dates: start: 20100501
  5. ASPIRIN [Concomitant]
  6. ASCORBIC ACID [Concomitant]
  7. ONE-A-DAY VITAMIN [Concomitant]
  8. NEXIUM [Concomitant]
  9. FEXOFENADINE HCL [Concomitant]
  10. FOLIC ACID [Concomitant]
  11. LIPITOR [Concomitant]
  12. WARFARIN SODIUM [Concomitant]
  13. LISINOPRIL [Concomitant]
  14. AN UNNAMED ^WATER MEDICATION^ [Concomitant]
  15. GABAPENTIN [Concomitant]
  16. ^GILOSTAZOL^ [Concomitant]

REACTIONS (7)
  - CEREBROVASCULAR ACCIDENT [None]
  - DIZZINESS [None]
  - FEELING DRUNK [None]
  - MUSCULAR WEAKNESS [None]
  - OVERDOSE [None]
  - PAIN IN EXTREMITY [None]
  - PARALYSIS [None]
